FAERS Safety Report 7309555-0 (Version None)
Quarter: 2011Q1

REPORT INFORMATION
  Report Type: 
  Country: None (occurrence: None)
  Receive Date: 20110223
  Receipt Date: 20110218
  Transmission Date: 20110831
  Serious: Yes (Hospitalization)
  Sender: FDA-Public Use
  Company Number: JP-MERCK-1102USA02424

PATIENT
  Age: 39 Year
  Sex: Male

DRUGS (3)
  1. COZAAR [Concomitant]
     Indication: HYPERTENSION
     Route: 048
     Dates: start: 20100101
  2. METFORMIN HCL [Concomitant]
     Route: 048
     Dates: start: 20100101
  3. JANUVIA [Suspect]
     Indication: DIABETES MELLITUS
     Route: 048
     Dates: start: 20100320

REACTIONS (1)
  - MYOCARDIAL INFARCTION [None]
